FAERS Safety Report 23038960 (Version 1)
Quarter: 2023Q4

REPORT INFORMATION
  Report Type: Spontaneous
  Country: US (occurrence: US)
  Receive Date: 20231006
  Receipt Date: 20231006
  Transmission Date: 20240110
  Serious: Yes (Hospitalization, Other)
  Sender: FDA-Public Use
  Company Number: US-BRISTOL-MYERS SQUIBB COMPANY-2023-140531

PATIENT
  Age: 70 Year

DRUGS (1)
  1. POMALYST [Suspect]
     Active Substance: POMALIDOMIDE
     Indication: Plasma cell myeloma
     Dosage: ONCE DAILY
     Route: 048

REACTIONS (6)
  - Malaise [Unknown]
  - Cardiac arrest [Unknown]
  - Anaemia [Unknown]
  - Pneumonia [Unknown]
  - Pulmonary oedema [Unknown]
  - Dyspnoea [Unknown]
